FAERS Safety Report 26134948 (Version 1)
Quarter: 2025Q4

REPORT INFORMATION
  Report Type: Spontaneous
  Country: US (occurrence: US)
  Receive Date: 20251209
  Receipt Date: 20251209
  Transmission Date: 20260118
  Serious: No
  Sender: NOVARTIS
  Company Number: US-002147023-NVSC2025US188426

PATIENT
  Sex: Female

DRUGS (1)
  1. KESIMPTA [Suspect]
     Active Substance: OFATUMUMAB
     Indication: Product used for unknown indication
     Dosage: UNK, 20MG/0.4M
     Route: 065

REACTIONS (4)
  - Device mechanical issue [Unknown]
  - Drug dose omission by device [Unknown]
  - Device malfunction [Unknown]
  - Accidental exposure to product [Unknown]
